FAERS Safety Report 8645534 (Version 2)
Quarter: 2012Q4

REPORT INFORMATION
  Report Type: 
  Country: CN (occurrence: CN)
  Receive Date: 20120702
  Receipt Date: 20120912
  Transmission Date: 20130627
  Serious: Yes (Death)
  Sender: FDA-Public Use
  Company Number: CN-ROCHE-1075905

PATIENT

DRUGS (1)
  1. ALTEPLASE [Suspect]
     Indication: ISCHAEMIC STROKE
     Dosage: maximum 90 mg, 10% as bolus injection over 1 min, 90% as drip over 1 hour
     Route: 042

REACTIONS (1)
  - Haemorrhage intracranial [Fatal]
